FAERS Safety Report 18927188 (Version 1)
Quarter: 2021Q1

REPORT INFORMATION
  Report Type: Spontaneous
  Country: US (occurrence: US)
  Receive Date: 20210222
  Receipt Date: 20210222
  Transmission Date: 20210420
  Serious: Yes (Death)
  Sender: FDA-Public Use
  Company Number: None

PATIENT
  Age: 83 Year
  Sex: Female

DRUGS (17)
  1. BRIMONIDINE [Concomitant]
     Active Substance: BRIMONIDINE TARTRATE
  2. POLYMYXIN [Concomitant]
     Active Substance: POLYMYXIN
  3. FLUOROMETHOLONE. [Concomitant]
     Active Substance: FLUOROMETHOLONE
  4. ACYCLOVIR. [Concomitant]
     Active Substance: ACYCLOVIR
  5. MELOXICAM. [Concomitant]
     Active Substance: MELOXICAM
  6. LEVOTHYROXINE. [Concomitant]
     Active Substance: LEVOTHYROXINE
  7. HYDROCHLOROTHIAZIDE. [Concomitant]
     Active Substance: HYDROCHLOROTHIAZIDE
  8. METHOTREXATE. [Concomitant]
     Active Substance: METHOTREXATE
  9. OFLOXACIN. [Concomitant]
     Active Substance: OFLOXACIN
  10. ENBREL [Suspect]
     Active Substance: ETANERCEPT
     Indication: RHEUMATOID ARTHRITIS
     Dosage: ?          OTHER FREQUENCY:ONCE A WEEK;?
     Route: 058
     Dates: start: 20180220, end: 20210204
  11. CLOPIDOGREL [Concomitant]
     Active Substance: CLOPIDOGREL BISULFATE
  12. LISINOPRIL. [Concomitant]
     Active Substance: LISINOPRIL
  13. PILOCARPINE. [Concomitant]
     Active Substance: PILOCARPINE
  14. ATORVASTATIN [Concomitant]
     Active Substance: ATORVASTATIN
  15. DIGOXIN. [Concomitant]
     Active Substance: DIGOXIN
  16. WARFARIN [Concomitant]
     Active Substance: WARFARIN
  17. FOLIC ACID. [Concomitant]
     Active Substance: FOLIC ACID

REACTIONS (1)
  - Death [None]

NARRATIVE: CASE EVENT DATE: 20210204
